FAERS Safety Report 25623374 (Version 2)
Quarter: 2025Q4

REPORT INFORMATION
  Report Type: Spontaneous
  Country: JP (occurrence: JP)
  Receive Date: 20250730
  Receipt Date: 20251022
  Transmission Date: 20260118
  Serious: Yes (Other)
  Sender: DAIICHI
  Company Number: JP-DAIICHI SANKYO, INC.-DS-2025-140626-JP

PATIENT
  Age: 69 Year
  Sex: Male
  Weight: 68.8 kg

DRUGS (10)
  1. VANFLYTA [Suspect]
     Active Substance: QUIZARTINIB DIHYDROCHLORIDE
     Indication: Acute myeloid leukaemia
     Dosage: 35.4 MG/DAY
     Route: 048
     Dates: start: 20241001, end: 20241004
  2. VANFLYTA [Suspect]
     Active Substance: QUIZARTINIB DIHYDROCHLORIDE
     Dosage: 17.7 MG/DAY
     Route: 048
     Dates: start: 20241110, end: 20241123
  3. CYTARABINE [Concomitant]
     Active Substance: CYTARABINE
     Indication: Acute myeloid leukaemia
     Dosage: 2500 MG/BODY, BID (INTERMITTENTLY THREE TIMES PER WEEK, DAYS 1, 3, AND 5)
     Route: 041
     Dates: start: 20241105, end: 20241109
  4. VORICONAZOLE [Concomitant]
     Active Substance: VORICONAZOLE
     Indication: Product used for unknown indication
     Dosage: UNK
     Route: 065
  5. DAUNORUBICIN HYDROCHLORIDE [Concomitant]
     Active Substance: DAUNORUBICIN HYDROCHLORIDE
     Indication: Acute myeloid leukaemia
     Dosage: 80 MG/BODY, QD (CONSECUTIVE DAYS)
     Route: 041
     Dates: start: 20240920, end: 20240926
  6. CYTARABINE [Concomitant]
     Active Substance: CYTARABINE
     Indication: Acute myeloid leukaemia
     Dosage: 80 MG/BODY, BID  (CONSECUTIVE DAYS)
     Route: 041
     Dates: start: 20240920, end: 20240926
  7. HUMAN RED BLOOD CELL [Concomitant]
     Active Substance: HUMAN RED BLOOD CELL
     Indication: Transfusion
     Dosage: AS APPROPRIATE
     Route: 065
     Dates: start: 20240920, end: 20241230
  8. FRESH FROZEN PLASMA [Concomitant]
     Active Substance: HUMAN PLASMA
     Indication: Transfusion
     Dosage: AS APPROPRIATE
     Route: 065
     Dates: start: 20240920, end: 20241010
  9. PLATELETS [Concomitant]
     Active Substance: HUMAN PLATELET, ALLOGENIC
     Indication: Transfusion
     Dosage: AS APPROPRIATE
     Route: 065
     Dates: start: 20240921, end: 20241123
  10. CEFEPIME HYDROCHLORIDE [Concomitant]
     Active Substance: CEFEPIME HYDROCHLORIDE
     Indication: Febrile neutropenia
     Dosage: UNK
     Route: 065
     Dates: start: 20241114

REACTIONS (3)
  - Tubulointerstitial nephritis [Recovering/Resolving]
  - Blood bilirubin increased [Recovered/Resolved]
  - IgA nephropathy [Unknown]

NARRATIVE: CASE EVENT DATE: 20241004
